FAERS Safety Report 5266448-0 (Version None)
Quarter: 2007Q1

REPORT INFORMATION
  Report Type: 
  Country: None (occurrence: None)
  Receive Date: 20070315
  Receipt Date: 20070223
  Transmission Date: 20070707
  Serious: No
  Sender: FDA-Public Use
  Company Number: US-GLAXOSMITHKLINE-A0640784A

PATIENT
  Age: 48 Year
  Sex: Female

DRUGS (7)
  1. ADVAIR DISKUS 100/50 [Suspect]
     Indication: ASTHMA
     Dosage: 2MCG TWICE PER DAY
     Route: 055
     Dates: start: 20070101
  2. ZYRTEC [Concomitant]
  3. SINGULAIR [Concomitant]
  4. NASACORT [Concomitant]
  5. ASTELIN [Concomitant]
  6. LIPITOR [Concomitant]
  7. ALBUTEROL [Concomitant]

REACTIONS (4)
  - CHEST DISCOMFORT [None]
  - DRUG INEFFECTIVE [None]
  - DYSPNOEA [None]
  - PHARMACEUTICAL PRODUCT COMPLAINT [None]
